FAERS Safety Report 4544229-0 (Version None)
Quarter: 2004Q4

REPORT INFORMATION
  Report Type: 
  Country: None (occurrence: None)
  Receive Date: 20041230
  Receipt Date: 20041230
  Transmission Date: 20050328
  Serious: Yes (Other)
  Sender: FDA-Public Use
  Company Number: None

PATIENT
  Age: 4 Year
  Sex: Male

DRUGS (1)
  1. TANNIHIST-12 RF SUSPENSION [Suspect]
     Indication: COUGH
     Dosage: 1 TSP., ORALLY, AS NEEDED
     Route: 048
     Dates: start: 20040921

REACTIONS (2)
  - RESTLESSNESS [None]
  - VOMITING [None]
